FAERS Safety Report 24248998 (Version 1)
Quarter: 2024Q3

REPORT INFORMATION
  Report Type: Spontaneous
  Country: US (occurrence: None)
  Receive Date: 20240822
  Receipt Date: 20240822
  Transmission Date: 20241017
  Serious: Yes (Other)
  Sender: Public
  Company Number: None

PATIENT
  Age: 83 Year
  Sex: Female
  Weight: 54.43 kg

DRUGS (1)
  1. ZOLEDRONIC ACID [Suspect]
     Active Substance: ZOLEDRONIC ACID
     Indication: Bone density abnormal

REACTIONS (9)
  - Arthralgia [None]
  - Pain in extremity [None]
  - Nausea [None]
  - Vomiting [None]
  - Choking [None]
  - Headache [None]
  - Cough [None]
  - Groin pain [None]
  - Dental caries [None]

NARRATIVE: CASE EVENT DATE: 20240612
